FAERS Safety Report 5754418-5 (Version None)
Quarter: 2008Q2

REPORT INFORMATION
  Report Type: 
  Country: None (occurrence: None)
  Receive Date: 20080530
  Receipt Date: 20080527
  Transmission Date: 20081010
  Serious: Yes (Death)
  Sender: FDA-Public Use
  Company Number: GB-BOEHRINGER INGELHEIM GMBH, GERMANY-2008-DE-03055GD

PATIENT
  Age: 52 Year
  Sex: Female

DRUGS (8)
  1. CLONIDINE [Suspect]
     Indication: CANCER PAIN
     Route: 037
  2. CLONIDINE [Suspect]
     Indication: NEURALGIA
  3. BUPIVACAINE [Concomitant]
     Indication: CANCER PAIN
     Route: 037
  4. BUPIVACAINE [Concomitant]
     Indication: NEURALGIA
  5. DIAMORPHINE [Concomitant]
     Indication: CANCER PAIN
     Route: 037
  6. DIAMORPHINE [Concomitant]
     Indication: NEURALGIA
  7. ANALGESICS [Concomitant]
     Indication: CANCER PAIN
     Route: 051
  8. ANALGESICS [Concomitant]
     Indication: NEURALGIA

REACTIONS (2)
  - DEATH [None]
  - HYPOTENSION [None]
